FAERS Safety Report 10416351 (Version 1)
Quarter: 2014Q3

REPORT INFORMATION
  Report Type: Spontaneous
  Country: US (occurrence: None)
  Receive Date: 20140827
  Receipt Date: 20140827
  Transmission Date: 20150326
  Serious: Yes (Other)
  Sender: FDA-Public Use
  Company Number: None

PATIENT
  Age: 64 Year
  Sex: Female
  Weight: 83.92 kg

DRUGS (2)
  1. TRAMADOL [Suspect]
     Active Substance: TRAMADOL
     Indication: INJURY
     Dosage: 1 OR 2 AT BEDTIME TAKEN BY MOUTH
     Route: 048
     Dates: start: 20140811, end: 20140817
  2. TRAMADOL [Suspect]
     Active Substance: TRAMADOL
     Indication: PAIN
     Dosage: 1 OR 2 AT BEDTIME TAKEN BY MOUTH
     Route: 048
     Dates: start: 20140811, end: 20140817

REACTIONS (2)
  - Suicidal ideation [None]
  - Depressed mood [None]

NARRATIVE: CASE EVENT DATE: 20140817
